FAERS Safety Report 4371242-9 (Version None)
Quarter: 2004Q2

REPORT INFORMATION
  Report Type: 
  Country: None (occurrence: None)
  Receive Date: 20040603
  Receipt Date: 20040517
  Transmission Date: 20050107
  Serious: Yes (Other)
  Sender: FDA-Public Use
  Company Number: PT-JNJFOC-20040503838

PATIENT
  Age: 44 Year
  Sex: Female

DRUGS (3)
  1. REMICADE [Suspect]
     Indication: CROHN'S DISEASE
     Dosage: INTRAVENOUS
     Route: 042
     Dates: start: 20030226, end: 20031001
  2. AZATHIOPRINE [Suspect]
     Dates: start: 20030601
  3. OMEPRAZOLE (TABLETS) OMEPRAZOLE [Concomitant]

REACTIONS (10)
  - ARTHRALGIA [None]
  - DIARRHOEA [None]
  - DYSPNOEA [None]
  - ERYTHEMA [None]
  - FLUSHING [None]
  - HYPERHIDROSIS [None]
  - PANCREATITIS [None]
  - RASH [None]
  - SWELLING FACE [None]
  - TACHYPNOEA [None]
